FAERS Safety Report 8275889-9 (Version None)
Quarter: 2012Q2

REPORT INFORMATION
  Report Type: 
  Country: None (occurrence: None)
  Receive Date: 20120410
  Receipt Date: 20120410
  Transmission Date: 20120825
  Serious: No
  Sender: FDA-Public Use
  Company Number: None

PATIENT

DRUGS (1)
  1. FLEETS PHOSPHOR SODA [Suspect]

REACTIONS (7)
  - NEPHROPATHY TOXIC [None]
  - CONDITION AGGRAVATED [None]
  - HYPERPHOSPHATAEMIA [None]
  - HAEMODIALYSIS [None]
  - RENAL FAILURE ACUTE [None]
  - HYPOCALCAEMIA [None]
  - MEDICATION ERROR [None]
